FAERS Safety Report 19436408 (Version 1)
Quarter: 2021Q2

REPORT INFORMATION
  Report Type: Spontaneous
  Country: US (occurrence: US)
  Receive Date: 20210618
  Receipt Date: 20210618
  Transmission Date: 20210717
  Serious: No
  Sender: FDA-Public Use
  Company Number: US-ACCORD-220985

PATIENT
  Sex: Female

DRUGS (1)
  1. OLMESARTAN MEDOXOMIL ACCORD [Suspect]
     Active Substance: OLMESARTAN MEDOXOMIL
     Indication: HYPERTENSION
     Dosage: STRENGTH?40 MG, DAILY
     Route: 048

REACTIONS (3)
  - Dizziness [Not Recovered/Not Resolved]
  - Product packaging issue [Unknown]
  - Product label issue [Unknown]
